FAERS Safety Report 14563306 (Version 1)
Quarter: 2018Q1

REPORT INFORMATION
  Report Type: Report from Study
  Country: PH (occurrence: PH)
  Receive Date: 20180222
  Receipt Date: 20180222
  Transmission Date: 20180509
  Serious: Yes (Hospitalization)
  Sender: FDA-Public Use
  Company Number: PH-OTSUKA-2018_004043

PATIENT
  Age: 22 Year
  Sex: Male

DRUGS (4)
  1. VALPROIC ACID. [Suspect]
     Active Substance: VALPROIC ACID
     Indication: PSYCHOTIC DISORDER
     Dosage: 15 MG, UNK
     Route: 065
     Dates: start: 20171001
  2. CLOZAPINE. [Suspect]
     Active Substance: CLOZAPINE
     Indication: PSYCHOTIC DISORDER
     Dosage: 10 MG HALF TABLET
     Route: 065
  3. ARIPIPRAZOLE. [Suspect]
     Active Substance: ARIPIPRAZOLE
     Indication: PSYCHOTIC DISORDER
     Dosage: UNK, QD
     Route: 065
     Dates: start: 20171001
  4. ARIPIPRAZOLE. [Suspect]
     Active Substance: ARIPIPRAZOLE
     Dosage: UNK, TID
     Route: 065
     Dates: end: 20180105

REACTIONS (6)
  - Mental impairment [Unknown]
  - Speech disorder [Unknown]
  - Hospitalisation [Recovered/Resolved]
  - Movement disorder [Recovered/Resolved]
  - Inappropriate schedule of drug administration [Unknown]
  - Staring [Recovered/Resolved]

NARRATIVE: CASE EVENT DATE: 20171220
